FAERS Safety Report 7420882-9 (Version None)
Quarter: 2011Q2

REPORT INFORMATION
  Report Type: 
  Country: None (occurrence: None)
  Receive Date: 20110418
  Receipt Date: 20110412
  Transmission Date: 20111010
  Serious: Yes (Hospitalization)
  Sender: FDA-Public Use
  Company Number: A0903051A

PATIENT
  Age: 69 Year
  Sex: Female

DRUGS (10)
  1. AVANDIA [Suspect]
     Indication: DIABETES MELLITUS
     Dosage: 4MG PER DAY
     Route: 048
     Dates: start: 20080820, end: 20100701
  2. METFORMIN [Concomitant]
  3. PAROXETINE [Concomitant]
  4. PRAVASTATIN [Concomitant]
  5. PHENYTOIN [Concomitant]
  6. IBUPROFEN [Concomitant]
  7. GEMFIBROZIL [Concomitant]
  8. HYDROCHLOROTHIAZIDE [Concomitant]
  9. LOTREL [Concomitant]
  10. RANITIDINE [Concomitant]

REACTIONS (1)
  - BUNDLE BRANCH BLOCK LEFT [None]
